FAERS Safety Report 21047485 (Version 1)
Quarter: 2022Q3

REPORT INFORMATION
  Report Type: Report from Study
  Country: US (occurrence: US)
  Receive Date: 20220706
  Receipt Date: 20220706
  Transmission Date: 20221027
  Serious: Yes (Other)
  Sender: FDA-Public Use
  Company Number: US-BRISTOL-MYERS SQUIBB COMPANY-2022-014584

PATIENT
  Age: 66 Year
  Sex: Female
  Weight: 68 kg

DRUGS (3)
  1. REVLIMID [Suspect]
     Active Substance: LENALIDOMIDE
     Indication: Osteoporosis
     Dosage: FREQUENCY DAILY 14 DAYS?REVLIMID FIRST SHIPPED ON 11-JUL-2019
     Route: 048
     Dates: start: 2019
  2. REVLIMID [Suspect]
     Active Substance: LENALIDOMIDE
     Indication: Plasma cell myeloma
  3. POMALYST [Suspect]
     Active Substance: POMALIDOMIDE
     Indication: Product used for unknown indication
     Dosage: 21 OUT OF 28 DAYS
     Route: 048
     Dates: start: 20220225

REACTIONS (10)
  - Urinary tract infection [Unknown]
  - Neuropathy peripheral [Unknown]
  - Hyperaesthesia teeth [Unknown]
  - Tremor [Unknown]
  - Pyrexia [Unknown]
  - Chills [Unknown]
  - Hypoaesthesia oral [Unknown]
  - Paraesthesia [Unknown]
  - Hypoaesthesia [Unknown]
  - Blood calcium increased [Unknown]

NARRATIVE: CASE EVENT DATE: 20220601
